FAERS Safety Report 5606711-4 (Version None)
Quarter: 2008Q1

REPORT INFORMATION
  Report Type: 
  Country: None (occurrence: None)
  Receive Date: 20080125
  Receipt Date: 20080115
  Transmission Date: 20080703
  Serious: Yes (Hospitalization)
  Sender: FDA-Public Use
  Company Number: 2007BI020807

PATIENT
  Age: 53 Year
  Sex: Male

DRUGS (12)
  1. AVONEX [Suspect]
     Indication: MULTIPLE SCLEROSIS
     Dosage: 30 UG; QW; IM
     Route: 030
     Dates: start: 20000701
  2. TOPAMAX [Concomitant]
  3. FLEXERIL [Concomitant]
  4. FLOMAX [Concomitant]
  5. LEXAPRO [Concomitant]
  6. LISINOPRIL [Concomitant]
  7. PRILOSEC [Concomitant]
  8. PROCHLORPERAZINE [Concomitant]
  9. SEROQUEL [Concomitant]
  10. SCOPOLAMINE [Concomitant]
  11. ZANAFLEX [Concomitant]
  12. ZOMIG [Concomitant]

REACTIONS (3)
  - ASTHMA [None]
  - CONVULSION [None]
  - UNEVALUABLE EVENT [None]
